FAERS Safety Report 11399765 (Version 3)
Quarter: 2015Q4

REPORT INFORMATION
  Report Type: Not Available
  Country: GB (occurrence: GB)
  Receive Date: 20150820
  Receipt Date: 20151209
  Transmission Date: 20160304
  Serious: Yes (Death, Other)
  Sender: FDA-Public Use
  Company Number: GB-BEH-2015053171

PATIENT
  Age: 32 Year
  Sex: Male

DRUGS (1)
  1. FACTOR VIII [Suspect]
     Active Substance: ANTIHEMOPHILIC FACTOR HUMAN
     Indication: PRODUCT USED FOR UNKNOWN INDICATION

REACTIONS (5)
  - Acquired immunodeficiency syndrome [Fatal]
  - Hepatitis C [Fatal]
  - Suspected transmission of an infectious agent via product [Fatal]
  - General physical health deterioration [Unknown]
  - Infection [Fatal]

NARRATIVE: CASE EVENT DATE: 1986
